FAERS Safety Report 14767645 (Version 1)
Quarter: 2018Q2

REPORT INFORMATION
  Report Type: Spontaneous
  Country: US (occurrence: US)
  Receive Date: 20180417
  Receipt Date: 20180417
  Transmission Date: 20180711
  Serious: Yes (Other)
  Sender: FDA-Public Use
  Company Number: US-ROCHE-2106761

PATIENT
  Age: 53 Year
  Sex: Female
  Weight: 69.64 kg

DRUGS (3)
  1. CLONAZEPAM. [Suspect]
     Active Substance: CLONAZEPAM
     Indication: SEIZURE
     Dosage: ONGOING: UNKNOWN
     Route: 050
     Dates: start: 2010
  2. KLONOPIN [Suspect]
     Active Substance: CLONAZEPAM
     Dosage: AS NEEDED ;ONGOING: UNKNOWN
     Route: 050
     Dates: start: 2001
  3. KLONOPIN [Suspect]
     Active Substance: CLONAZEPAM
     Indication: SEIZURE
     Dosage: AS NEEDED ;ONGOING: NO
     Route: 050
     Dates: start: 1996, end: 2007

REACTIONS (7)
  - Brain operation [Recovered/Resolved]
  - Visual impairment [Not Recovered/Not Resolved]
  - Communication disorder [Recovered/Resolved]
  - Hemiplegia [Recovered/Resolved]
  - Intracranial pressure increased [Recovered/Resolved]
  - Seizure [Recovered/Resolved]
  - Unevaluable event [Recovered/Resolved]

NARRATIVE: CASE EVENT DATE: 20171204
